FAERS Safety Report 21336060 (Version 1)
Quarter: 2022Q3

REPORT INFORMATION
  Report Type: Report from Study
  Country: BR (occurrence: BR)
  Receive Date: 20220915
  Receipt Date: 20220915
  Transmission Date: 20221027
  Serious: Yes (Life-Threatening, Hospitalization)
  Sender: FDA-Public Use
  Company Number: BR-CELGENE-BRA-20180502219

PATIENT
  Age: 37 Year
  Sex: Female
  Weight: 81 kg

DRUGS (14)
  1. PACLITAXEL [Suspect]
     Active Substance: PACLITAXEL
     Indication: Triple negative breast cancer
     Route: 042
     Dates: start: 20180112
  2. PACLITAXEL [Suspect]
     Active Substance: PACLITAXEL
     Route: 042
     Dates: start: 20180329
  3. ATEZOLIZUMAB [Suspect]
     Active Substance: ATEZOLIZUMAB
     Indication: Triple negative breast cancer
     Dosage: MOST RECENT DOSE OF BLINDED ATEZOLIZUMAB PRIOR TO SAE RECEIVED ON 05-APR-2018 AT 17:50 (1200 MG,1 IN
     Route: 042
     Dates: start: 20180112
  4. DOXORUBICIN [Suspect]
     Active Substance: DOXORUBICIN
     Indication: Triple negative breast cancer
     Dosage: 106.8 MILLIGRAM
     Route: 042
     Dates: start: 20180405, end: 20180405
  5. CYCLOPHOSPHAMIDE [Suspect]
     Active Substance: CYCLOPHOSPHAMIDE
     Indication: Triple negative breast cancer
     Dosage: 1068 MILLIGRAM
     Route: 042
     Dates: start: 20180405, end: 20180405
  6. FEXOFENADINE [Concomitant]
     Active Substance: FEXOFENADINE HYDROCHLORIDE
     Indication: Cough
     Dosage: 120 MILLIGRAM
     Route: 048
     Dates: start: 20180315, end: 20180405
  7. PSEUDOEPHEDRINE [Concomitant]
     Active Substance: PSEUDOEPHEDRINE
     Indication: Cough
     Dosage: 240 MILLIGRAM
     Route: 048
     Dates: start: 20180315, end: 20180405
  8. DEXCHLORPHENIRAMINE [Concomitant]
     Active Substance: DEXCHLORPHENIRAMINE
     Indication: Cough
     Route: 065
     Dates: start: 20180305
  9. DEXCHLORPHENIRAMINE [Concomitant]
     Active Substance: DEXCHLORPHENIRAMINE
     Route: 065
     Dates: start: 20180422, end: 20180425
  10. DEXCHLORPHENIRAMINE [Concomitant]
     Active Substance: DEXCHLORPHENIRAMINE
     Dosage: FREQUENCY TEXT: NOT PROVIDED?2 MILLIGRAM
     Route: 048
     Dates: start: 20180421, end: 20180424
  11. ENOXIMONE [Concomitant]
     Active Substance: ENOXIMONE
     Dosage: 2 IN 1 D
     Route: 058
     Dates: start: 20180420
  12. ENOXIMONE [Concomitant]
     Active Substance: ENOXIMONE
     Indication: Thrombosis
     Dosage: 40 MILLIGRAM
     Route: 058
     Dates: start: 20180424, end: 20180425
  13. ONDANSETRON [Concomitant]
     Active Substance: ONDANSETRON
     Indication: Nausea
     Route: 065
     Dates: start: 20180405, end: 20180405
  14. HEPARIN SODIUM [Concomitant]
     Active Substance: HEPARIN SODIUM
     Indication: Thrombosis
     Dosage: 10000 IU (INTERNATIONAL UNIT)
     Route: 058
     Dates: start: 20180420, end: 20180423

REACTIONS (1)
  - Upper respiratory tract infection [Recovered/Resolved]

NARRATIVE: CASE EVENT DATE: 20180419
